FAERS Safety Report 7894376-0 (Version None)
Quarter: 2011Q4

REPORT INFORMATION
  Report Type: 
  Country: None (occurrence: None)
  Receive Date: 20111104
  Receipt Date: 20111028
  Transmission Date: 20120403
  Serious: Yes (Hospitalization)
  Sender: FDA-Public Use
  Company Number: US-ROCHE-1008305

PATIENT

DRUGS (3)
  1. AVASTIN [Suspect]
     Indication: CERVIX CARCINOMA
     Dosage: OVER 30-90 MIN ON DAY 1
     Route: 042
     Dates: start: 20110620
  2. TOPOTECAN HYDROCHLORIDE [Suspect]
     Indication: CERVIX CARCINOMA
     Dosage: OVER 30 MIN ON DAYS 1-3
     Route: 042
  3. PACLITAXEL [Suspect]
     Indication: CERVIX CARCINOMA
     Dosage: OVER 3 HRS ON DAY 1
     Route: 042

REACTIONS (3)
  - PELVIC PAIN [None]
  - PROCTITIS [None]
  - PROCTALGIA [None]
